FAERS Safety Report 22014657 (Version 1)
Quarter: 2023Q1

REPORT INFORMATION
  Report Type: Spontaneous
  Country: US (occurrence: US)
  Receive Date: 20230221
  Receipt Date: 20230221
  Transmission Date: 20230417
  Serious: No
  Sender: FDA-Public Use
  Company Number: US-009507513-2302USA005229

PATIENT
  Sex: Female

DRUGS (1)
  1. MOLNUPIRAVIR [Suspect]
     Active Substance: MOLNUPIRAVIR
     Indication: COVID-19 treatment
     Dosage: 800 MG TAKEN EVERY 12 HOURS FOR 5 DAYS
     Route: 048
     Dates: end: 20221231

REACTIONS (2)
  - Product prescribing issue [Unknown]
  - No adverse event [Unknown]
